FAERS Safety Report 10086864 (Version 2)
Quarter: 2014Q2

REPORT INFORMATION
  Report Type: Spontaneous
  Country: BR (occurrence: BR)
  Receive Date: 20140418
  Receipt Date: 20140418
  Transmission Date: 20141212
  Serious: Yes (Other)
  Sender: FDA-Public Use
  Company Number: BR-AMGEN INC.-BRASP2014022957

PATIENT
  Age: 56 Year
  Sex: Female
  Weight: 74 kg

DRUGS (7)
  1. ENBREL [Suspect]
     Indication: RHEUMATOID ARTHRITIS
     Dosage: 50 MG,  EVERY 15 DAYS
     Route: 065
     Dates: start: 200910
  2. PREDNISONE [Concomitant]
     Dosage: UNK
  3. METHOTREXATE [Concomitant]
     Dosage: UNK
  4. CAPTOPRIL [Concomitant]
     Indication: HYPERTENSION
     Dosage: 25 MG, QD
     Dates: start: 1993
  5. PROPRANOLOL [Concomitant]
     Indication: HYPERTENSION
     Dosage: 40 MG, QD
     Dates: start: 1993
  6. TENOXICAM [Concomitant]
     Dosage: UNK
  7. HYDROCHLOROTHIAZIDE [Concomitant]
     Indication: HYPERTENSION
     Dosage: (STRENGTH 12MG) QD
     Dates: start: 1993

REACTIONS (17)
  - Apparent death [Unknown]
  - Dyspnoea [Unknown]
  - Generalised erythema [Unknown]
  - Head discomfort [Unknown]
  - Formication [Unknown]
  - Pain [Unknown]
  - Cough [Unknown]
  - Chills [Unknown]
  - Eye disorder [Unknown]
  - Ocular hyperaemia [Unknown]
  - Tremor [Unknown]
  - Peripheral coldness [Unknown]
  - Nasal congestion [Unknown]
  - Swelling [Unknown]
  - Erythema [Unknown]
  - Paraesthesia [Unknown]
  - Catarrh [Unknown]
